FAERS Safety Report 7217096-4 (Version None)
Quarter: 2011Q1

REPORT INFORMATION
  Report Type: 
  Country: None (occurrence: None)
  Receive Date: 20110110
  Receipt Date: 20110104
  Transmission Date: 20110831
  Serious: No
  Sender: FDA-Public Use
  Company Number: US-JNJFOC-20110100961

PATIENT
  Sex: Female

DRUGS (3)
  1. OXYCODONE HCL AND ACETAMINOPHEN [Concomitant]
     Indication: BACK PAIN
     Dosage: 1-2 AS NEEDED
     Route: 048
  2. SOMA [Concomitant]
     Indication: BACK PAIN
     Dosage: 1-2 AS NEEDED
  3. FENTANYL-100 [Suspect]
     Indication: BACK PAIN
     Route: 062

REACTIONS (5)
  - WRONG TECHNIQUE IN DRUG USAGE PROCESS [None]
  - INSOMNIA [None]
  - MUSCLE TIGHTNESS [None]
  - DRUG EFFECT INCREASED [None]
  - FLUSHING [None]
